FAERS Safety Report 23111530 (Version 1)
Quarter: 2023Q4

REPORT INFORMATION
  Report Type: Spontaneous
  Country: US (occurrence: None)
  Receive Date: 20231025
  Receipt Date: 20231025
  Transmission Date: 20240110
  Serious: Yes (Other)
  Sender: FDA-Public Use
  Company Number: None

PATIENT
  Sex: Female

DRUGS (4)
  1. PROLIA [Suspect]
     Active Substance: DENOSUMAB
     Indication: Osteoporosis
     Dosage: OTHER FREQUENCY : EVERY 6 MONTHS;?
     Route: 058
     Dates: start: 20230504
  2. ALBUTEROL [Concomitant]
     Active Substance: ALBUTEROL
  3. SINGULAIR CHW [Concomitant]
  4. TRELEGY AER [Concomitant]

REACTIONS (1)
  - Chronic obstructive pulmonary disease [None]
